FAERS Safety Report 4523464-1 (Version None)
Quarter: 2004Q4

REPORT INFORMATION
  Report Type: 
  Country: None (occurrence: None)
  Receive Date: 20041117
  Receipt Date: 20040629
  Transmission Date: 20050328
  Serious: Yes (Hospitalization)
  Sender: FDA-Public Use
  Company Number: US-JNJFOC-20040705650

PATIENT
  Age: 72 Year
  Sex: Female
  Weight: 68.4932 kg

DRUGS (11)
  1. LEVOFLOXACIN [Suspect]
     Indication: TRACHEOBRONCHITIS
     Dosage: 500 MG, 1 IN 1 DAY, INTRAVENOUS
     Route: 042
     Dates: start: 20020813, end: 20020819
  2. COUMADIN [Concomitant]
  3. DIOVAN [Concomitant]
  4. FOLIC ACID [Concomitant]
  5. POTASSIUM (POTASSIUM) [Concomitant]
  6. PREDNISOLONE [Concomitant]
  7. PULMICORT [Concomitant]
  8. SINGULAIR [Concomitant]
  9. SYNTHROID [Concomitant]
  10. UNIPHYL [Concomitant]
  11. XANAX [Concomitant]

REACTIONS (2)
  - SICK SINUS SYNDROME [None]
  - TORSADE DE POINTES [None]
